FAERS Safety Report 13742055 (Version 1)
Quarter: 2017Q3

REPORT INFORMATION
  Report Type: Spontaneous
  Country: US (occurrence: US)
  Receive Date: 20170711
  Receipt Date: 20170711
  Transmission Date: 20171127
  Serious: Yes (Other)
  Sender: FDA-Public Use
  Company Number: US-BAYER-2017-129484

PATIENT
  Sex: Female
  Weight: 57 kg

DRUGS (2)
  1. AFRIN ORIGINAL [Suspect]
     Active Substance: OXYMETAZOLINE HYDROCHLORIDE
     Indication: NASOPHARYNGITIS
  2. AFRIN ORIGINAL [Suspect]
     Active Substance: OXYMETAZOLINE HYDROCHLORIDE
     Indication: HYPERSENSITIVITY
     Route: 055
     Dates: start: 1980

REACTIONS (6)
  - Pain in extremity [Unknown]
  - Erythema [Unknown]
  - Incorrect drug administration duration [Unknown]
  - Drug dependence [Unknown]
  - Limb discomfort [Unknown]
  - Product use complaint [None]
